FAERS Safety Report 25427116 (Version 1)
Quarter: 2025Q2

REPORT INFORMATION
  Report Type: Spontaneous
  Country: US (occurrence: US)
  Receive Date: 20250612
  Receipt Date: 20250612
  Transmission Date: 20250716
  Serious: Yes (Life-Threatening, Hospitalization, Other)
  Sender: UNICHEM
  Company Number: US-UNICHEM LABORATORIES LIMITED-UNI-2025-US-002463

PATIENT

DRUGS (1)
  1. METFORMIN [Suspect]
     Active Substance: METFORMIN HYDROCHLORIDE
     Indication: Product used for unknown indication
     Route: 065

REACTIONS (13)
  - Intentional overdose [Unknown]
  - Suicide attempt [Unknown]
  - Acute kidney injury [Unknown]
  - Cardiac dysfunction [Recovering/Resolving]
  - Cardiotoxicity [Unknown]
  - Metabolic acidosis [Recovering/Resolving]
  - Tachycardia [Unknown]
  - Hyperlactacidaemia [Recovering/Resolving]
  - Hypotension [Unknown]
  - Pancreatitis [Unknown]
  - Arrhythmia [Unknown]
  - Abdominal tenderness [Unknown]
  - Hypothermia [Recovering/Resolving]
